FAERS Safety Report 23363184 (Version 1)
Quarter: 2024Q1

REPORT INFORMATION
  Report Type: Spontaneous
  Country: DE (occurrence: DE)
  Receive Date: 20240103
  Receipt Date: 20240103
  Transmission Date: 20240410
  Serious: Yes (Other)
  Sender: FDA-Public Use
  Company Number: None

PATIENT
  Age: 68 Year
  Sex: Female

DRUGS (7)
  1. LORAZEPAM [Suspect]
     Active Substance: LORAZEPAM
     Route: 048
     Dates: start: 20230619, end: 20230620
  2. LORAZEPAM [Suspect]
     Active Substance: LORAZEPAM
     Route: 048
     Dates: start: 20230621
  3. LORAZEPAM [Suspect]
     Active Substance: LORAZEPAM
     Route: 048
     Dates: start: 20230622, end: 20230702
  4. VALSARTAN [Suspect]
     Active Substance: VALSARTAN
     Indication: Hypertension
     Route: 048
     Dates: start: 20230624
  5. DESVENLAFAXINE [Suspect]
     Active Substance: DESVENLAFAXINE
     Route: 048
     Dates: start: 20230620
  6. CHOLECALCIFEROL [Concomitant]
     Active Substance: CHOLECALCIFEROL
     Dosage: SINCE LONGER TIME
     Route: 048
  7. MOVICOL [Concomitant]
     Active Substance: POLYETHYLENE GLYCOL 3350\POTASSIUM CHLORIDE\SODIUM BICARBONATE\SODIUM CHLORIDE
     Dates: start: 20230619

REACTIONS (1)
  - Hyponatraemia [Recovering/Resolving]

NARRATIVE: CASE EVENT DATE: 20230628
